FAERS Safety Report 5164318-X (Version None)
Quarter: 2006Q4

REPORT INFORMATION
  Report Type: 
  Country: None (occurrence: None)
  Receive Date: 20061127
  Receipt Date: 20061127
  Transmission Date: 20070319
  Serious: Yes (Other)
  Sender: FDA-Public Use
  Company Number: None

PATIENT
  Age: 42 Year
  Sex: Female
  Weight: 50 kg

DRUGS (2)
  1. MISOPROSTOL [Suspect]
     Indication: PREGNANCY
     Dosage: 2 TABS 4 HOURS GAP AGAIN 2 TABS
     Dates: start: 20061114, end: 20061114
  2. MISOPROSTOL [Concomitant]

REACTIONS (3)
  - BLOOD FOLATE DECREASED [None]
  - GLOSSITIS [None]
  - MOUTH ULCERATION [None]
